FAERS Safety Report 5480466-9 (Version None)
Quarter: 2007Q4

REPORT INFORMATION
  Report Type: 
  Country: None (occurrence: None)
  Receive Date: 20071009
  Receipt Date: 20071004
  Transmission Date: 20080405
  Serious: Yes (Hospitalization)
  Sender: FDA-Public Use
  Company Number: B0490217A

PATIENT
  Age: 53 Year
  Sex: Male

DRUGS (6)
  1. ZYLORIC [Suspect]
     Dosage: 300MG PER DAY
     Route: 048
     Dates: start: 20070628, end: 20070808
  2. TIRODRIL [Suspect]
     Indication: HYPERTHYROIDISM
     Dosage: 5MG PER DAY
     Route: 048
     Dates: start: 20070628, end: 20070808
  3. RENITEC [Suspect]
     Dosage: 5MG PER DAY
     Route: 048
     Dates: start: 20060801
  4. SEGURIL [Suspect]
     Dosage: 300MG PER DAY
     Route: 048
     Dates: start: 20060608
  5. CHLORTHALIDONE [Suspect]
     Dosage: 50MG PER DAY
     Route: 048
     Dates: start: 20060801
  6. COROPRES [Suspect]
     Dosage: 12.5MG PER DAY
     Route: 048
     Dates: start: 20060801

REACTIONS (4)
  - AGRANULOCYTOSIS [None]
  - NEUTROPHIL COUNT DECREASED [None]
  - PYREXIA [None]
  - RASH PAPULOSQUAMOUS [None]
